FAERS Safety Report 14392637 (Version 1)
Quarter: 2018Q1

REPORT INFORMATION
  Report Type: Spontaneous
  Country: JP (occurrence: JP)
  Receive Date: 20180116
  Receipt Date: 20180116
  Transmission Date: 20180509
  Serious: Yes (Other)
  Sender: FDA-Public Use
  Company Number: JP-ELI_LILLY_AND_COMPANY-JP201801005019

PATIENT
  Age: 42 Year
  Sex: Male

DRUGS (2)
  1. CYRAMZA [Suspect]
     Active Substance: RAMUCIRUMAB
     Indication: NON-SMALL CELL LUNG CANCER RECURRENT
     Dosage: 10 MG/M2, SINGLE
     Route: 041
     Dates: start: 20171010, end: 20171010
  2. DOCETAXEL. [Suspect]
     Active Substance: DOCETAXEL
     Indication: NON-SMALL CELL LUNG CANCER RECURRENT
     Dosage: 60 MG/M2, CYCLICAL
     Route: 041
     Dates: start: 20171010

REACTIONS (2)
  - Neutropenia [Recovered/Resolved]
  - Nephrotic syndrome [Recovering/Resolving]

NARRATIVE: CASE EVENT DATE: 20171017
